FAERS Safety Report 4406278-2 (Version None)
Quarter: 2004Q3

REPORT INFORMATION
  Report Type: 
  Country: None (occurrence: None)
  Receive Date: 20040723
  Receipt Date: 20030604
  Transmission Date: 20050211
  Serious: No
  Sender: FDA-Public Use
  Company Number: US-GLAXOSMITHKLINE-A0410797A

PATIENT
  Age: 77 Year
  Sex: Female
  Weight: 83.6 kg

DRUGS (7)
  1. AVANDIA [Suspect]
     Dosage: 4MG PER DAY
     Route: 048
     Dates: start: 20021001, end: 20030701
  2. ZESTRIL [Concomitant]
     Indication: HYPERTENSION
     Route: 048
     Dates: start: 20010101
  3. FUROSEMIDE [Concomitant]
     Route: 048
     Dates: start: 20000928
  4. ACIPHEX [Concomitant]
     Route: 065
  5. AMARYL [Concomitant]
     Indication: DIABETES MELLITUS
     Route: 065
     Dates: start: 20010101
  6. WELCHOL [Concomitant]
     Dosage: 625U AS REQUIRED
     Route: 065
     Dates: start: 20010101
  7. MICRO-K [Concomitant]
     Route: 065
     Dates: start: 20030901

REACTIONS (4)
  - BLOOD GLUCOSE INCREASED [None]
  - HYPOAESTHESIA [None]
  - SINUS CONGESTION [None]
  - WEIGHT INCREASED [None]
